FAERS Safety Report 9501153 (Version 3)
Quarter: 2013Q3

REPORT INFORMATION
  Report Type: Spontaneous
  Country: BE (occurrence: BE)
  Receive Date: 20130905
  Receipt Date: 20130919
  Transmission Date: 20140515
  Serious: Yes (Other)
  Sender: FDA-Public Use
  Company Number: BE-BAYER-2013-104747

PATIENT
  Age: 60 Year
  Sex: Male

DRUGS (5)
  1. NEXAVAR [Suspect]
     Indication: HEPATOCELLULAR CARCINOMA
     Dosage: DAILY DOSE 600 MG
     Route: 048
     Dates: start: 20121127, end: 201307
  2. LASIX [Concomitant]
  3. ALDACTONE A [Concomitant]
  4. EMCONCOR [Concomitant]
  5. LIPITOR [Concomitant]

REACTIONS (1)
  - Acute febrile neutrophilic dermatosis [Recovering/Resolving]
